FAERS Safety Report 18177780 (Version 1)
Quarter: 2020Q3

REPORT INFORMATION
  Report Type: Spontaneous
  Country: US (occurrence: US)
  Receive Date: 20200820
  Receipt Date: 20200820
  Transmission Date: 20201103
  Serious: Yes (Other)
  Sender: FDA-Public Use
  Company Number: US-OMEROS CORPORATION-2020OME00003

PATIENT
  Age: 49 Year
  Sex: Female
  Weight: 78.46 kg

DRUGS (23)
  1. OMIDRIA [Suspect]
     Active Substance: KETOROLAC\PHENYLEPHRINE
     Indication: CATARACT OPERATION
     Dosage: 4 ML PER 500 CC BSS SOLUTION
     Route: 047
     Dates: start: 20200625, end: 20200625
  2. OMIDRIA [Suspect]
     Active Substance: KETOROLAC\PHENYLEPHRINE
     Indication: INTRAOCULAR LENS IMPLANT
  3. BETADINE [Concomitant]
     Active Substance: POVIDONE-IODINE
     Dosage: UNK
     Dates: start: 20200625, end: 20200625
  4. TIMOLOL. [Concomitant]
     Active Substance: TIMOLOL
     Dosage: UNK
     Dates: start: 20200625, end: 20200625
  5. VISCOAT [Concomitant]
     Dosage: UNK
     Dates: start: 20200625, end: 20200625
  6. AMLODIPINE [Concomitant]
     Active Substance: AMLODIPINE BESYLATE
  7. ENALAPRIL [Concomitant]
     Active Substance: ENALAPRIL
  8. LESS DROPS [Concomitant]
  9. OMIDRIA [Suspect]
     Active Substance: KETOROLAC\PHENYLEPHRINE
     Indication: VISION CORRECTION OPERATION
  10. AVELOX [Concomitant]
     Active Substance: MOXIFLOXACIN HYDROCHLORIDE
     Dosage: 0.1 ML
     Dates: start: 20200625, end: 20200625
  11. PROPARACAINE [Concomitant]
     Active Substance: PROPARACAINE
     Dosage: UNK
     Dates: start: 20200625, end: 20200625
  12. OFLOXACIN. [Concomitant]
     Active Substance: OFLOXACIN
     Dosage: X 3 PRIOR TO PROCEDURE
     Dates: start: 2020, end: 2020
  13. LIDOCAINE PF [Concomitant]
     Active Substance: LIDOCAINE
     Dosage: UNK
     Dates: start: 20200625, end: 20200625
  14. PROPARACAINE [Concomitant]
     Active Substance: PROPARACAINE
     Dosage: X 3 PRIOR TO PROCEDURE
     Dates: start: 2020, end: 2020
  15. VERSED [Concomitant]
     Active Substance: MIDAZOLAM HYDROCHLORIDE
     Dosage: 2 MG PRIOR TO PROCEDURE
     Route: 042
     Dates: start: 2020, end: 2020
  16. BSS SOLUTION (ALCON) [Concomitant]
     Dosage: 4 ML OMIDRIA PER 500 CC BSS SOLUTION
     Dates: start: 20200625, end: 20200625
  17. SERTRALINE [Concomitant]
     Active Substance: SERTRALINE HYDROCHLORIDE
  18. ANIKAVISC [Concomitant]
     Dosage: UNK
     Dates: start: 20200625, end: 20200625
  19. TOBRADEX [Concomitant]
     Active Substance: DEXAMETHASONE\TOBRAMYCIN
     Dosage: UNK
     Dates: start: 20200625, end: 20200625
  20. LABETOLOL [Concomitant]
     Active Substance: LABETALOL HYDROCHLORIDE
  21. PHENYLEPHRINE [Concomitant]
     Active Substance: PHENYLEPHRINE HYDROCHLORIDE
     Dosage: X 3 PRIOR TO PROCEDURE
     Dates: start: 2020, end: 2020
  22. MAGNESIUM [Concomitant]
     Active Substance: MAGNESIUM
  23. CYCLOGYL [Concomitant]
     Active Substance: CYCLOPENTOLATE HYDROCHLORIDE
     Dosage: X 3 PRIOR TO PROCEDURE
     Dates: start: 2020, end: 2020

REACTIONS (1)
  - Vitritis [Recovered/Resolved]

NARRATIVE: CASE EVENT DATE: 20200713
